FAERS Safety Report 11743679 (Version 1)
Quarter: 2015Q4

REPORT INFORMATION
  Report Type: Report from Study
  Country: US (occurrence: US)
  Receive Date: 20151116
  Receipt Date: 20151116
  Transmission Date: 20160304
  Serious: Yes (Other)
  Sender: FDA-Public Use
  Company Number: US-ABBVIE-15P-163-1499388-00

PATIENT
  Age: 36 Year
  Sex: Female

DRUGS (4)
  1. NORVIR [Suspect]
     Active Substance: RITONAVIR
     Indication: ANTIRETROVIRAL THERAPY
     Dosage: ONE COURSE; NOT TAKEN PRIOR TO CONCEPTION, FIRST TRIMESTER EARLIEST EXPOSURE
     Route: 048
     Dates: start: 20150729
  2. TRIUMEQ [Suspect]
     Active Substance: ABACAVIR SULFATE\DOLUTEGRAVIR SODIUM\LAMIVUDINE
     Indication: ANTIRETROVIRAL THERAPY
     Dosage: TAB/CAPS ONE COURSE; TAKEN PRIOR TO CONCEPTION, FIRST TRIMESTER EARLIEST EXPOSURE
     Route: 048
     Dates: end: 20150729
  3. EPZICOM [Suspect]
     Active Substance: ABACAVIR SULFATE\LAMIVUDINE
     Indication: ANTIRETROVIRAL THERAPY
     Dosage: TAB/CAPS ONE COURSE; TAKEN PRIOR TO CONCEPTION, FIRST TRIMESTER EARLIEST EXPOSURE
     Route: 048
  4. REYATAZ [Suspect]
     Active Substance: ATAZANAVIR SULFATE
     Indication: ANTIRETROVIRAL THERAPY
     Dosage: ONE COURSE; NOT TAKEN PRIOR TO CONCEPTION, FIRST TRIMESTER EARLIEST EXPOSURE
     Route: 048
     Dates: start: 20150729

REACTIONS (3)
  - Abortion spontaneous [Recovered/Resolved]
  - Foetal death [Unknown]
  - Exposure during pregnancy [Unknown]

NARRATIVE: CASE EVENT DATE: 20150923
